FAERS Safety Report 13905406 (Version 1)
Quarter: 2017Q3

REPORT INFORMATION
  Report Type: Spontaneous
  Country: US (occurrence: US)
  Receive Date: 20170825
  Receipt Date: 20170825
  Transmission Date: 20171127
  Serious: No
  Sender: FDA-Public Use
  Company Number: US-TEVA-733549USA

PATIENT
  Age: 82 Year
  Sex: Male
  Weight: 88 kg

DRUGS (1)
  1. ALENDRONATE SODIUM. [Suspect]
     Active Substance: ALENDRONATE SODIUM
     Dates: start: 20170109

REACTIONS (1)
  - Joint stiffness [Unknown]

NARRATIVE: CASE EVENT DATE: 20170109
